FAERS Safety Report 17636329 (Version 1)
Quarter: 2020Q2

REPORT INFORMATION
  Report Type: Spontaneous
  Country: US (occurrence: US)
  Receive Date: 20200407
  Receipt Date: 20200407
  Transmission Date: 20200713
  Serious: No
  Sender: FDA-Public Use
  Company Number: NVSC2020US091009

PATIENT
  Sex: Male

DRUGS (2)
  1. BUPROPION HCL [Suspect]
     Active Substance: BUPROPION HYDROCHLORIDE
     Indication: MOOD ALTERED
     Dosage: 150 MG
     Route: 065
  2. BUPROPION HCL [Suspect]
     Active Substance: BUPROPION HYDROCHLORIDE
     Dosage: 200 MG
     Route: 065

REACTIONS (1)
  - Mood altered [Unknown]
